FAERS Safety Report 14962547 (Version 1)
Quarter: 2018Q2

REPORT INFORMATION
  Report Type: Spontaneous
  Country: US (occurrence: US)
  Receive Date: 20180601
  Receipt Date: 20180601
  Transmission Date: 20180711
  Serious: No
  Sender: FDA-Public Use
  Company Number: US-PFIZER INC-2018223699

PATIENT
  Age: 28 Year
  Sex: Male

DRUGS (3)
  1. EUCRISA [Suspect]
     Active Substance: CRISABOROLE
     Indication: BLISTER
  2. EUCRISA [Suspect]
     Active Substance: CRISABOROLE
     Indication: URTICARIA
  3. EUCRISA [Suspect]
     Active Substance: CRISABOROLE
     Indication: ECZEMA HERPETICUM
     Dosage: UNK

REACTIONS (1)
  - Drug effect incomplete [Unknown]
